FAERS Safety Report 25682056 (Version 3)
Quarter: 2025Q4

REPORT INFORMATION
  Report Type: Spontaneous
  Country: JP (occurrence: JP)
  Receive Date: 20250814
  Receipt Date: 20251027
  Transmission Date: 20260117
  Serious: Yes (Life-Threatening, Hospitalization, Other)
  Sender: PFIZER
  Company Number: JP-PFIZER INC-PV202500097239

PATIENT
  Age: 70 Year
  Sex: Male
  Weight: 45.8 kg

DRUGS (12)
  1. BEVACIZUMAB [Suspect]
     Active Substance: BEVACIZUMAB
     Indication: Colon cancer
     Dosage: 10 MG/KG, CYCLIC (ON DAY 1) REPEATED EVERY 3 WEEKS
  2. OXALIPLATIN [Suspect]
     Active Substance: OXALIPLATIN
     Indication: Colon cancer
     Dosage: 130 MG/M2, CYCLIC (ON DAY 1) REPEATED EVERY 3 WEEKS
  3. CAPECITABINE [Suspect]
     Active Substance: CAPECITABINE
     Indication: Colon cancer
     Dosage: 2000 MG/M2, CYCLIC (TWICE DAILY BEGINNING FROM THE EVENING OF DAY 1 UNTIL THE MORNING OF DAY 15)
     Route: 048
  4. CLOPIDOGREL [Concomitant]
     Active Substance: CLOPIDOGREL BISULFATE
     Dosage: UNK
  5. VALSARTAN [Concomitant]
     Active Substance: VALSARTAN
     Dosage: UNK
  6. IFENPRODIL [Concomitant]
     Active Substance: IFENPRODIL
     Dosage: UNK
  7. FOLIC ACID [Concomitant]
     Active Substance: FOLIC ACID
     Dosage: UNK
  8. TEPRENONE [Concomitant]
     Active Substance: TEPRENONE
  9. PALONOSETRON [Concomitant]
     Active Substance: PALONOSETRON
     Indication: Prophylaxis of nausea and vomiting
     Dosage: 0.75 MG (ADMINISTERED 30  MIN BEFORE OXALIPLATIN ON DAY 1)
     Route: 042
  10. DEXAMETHASONE [Concomitant]
     Active Substance: DEXAMETHASONE
     Indication: Prophylaxis of nausea and vomiting
     Dosage: 4.95 MG (ADMINISTERED 30  MIN BEFORE OXALIPLATIN ON DAY 1)
  11. APREPITANT [Concomitant]
     Active Substance: APREPITANT
     Indication: Prophylaxis of nausea and vomiting
     Dosage: 125 MG (ADMINISTERED UP TO 1 H BEFORE OXALIPLATIN ADMINISTRATION DAY 1)
     Route: 048
  12. APREPITANT [Concomitant]
     Active Substance: APREPITANT
     Dosage: 80 MG (AFTER BREAKFAST, ON DAYS 2 AND 3)
     Route: 048

REACTIONS (2)
  - Inappropriate antidiuretic hormone secretion [Recovering/Resolving]
  - Intestinal obstruction [Unknown]
